FAERS Safety Report 8313723-9 (Version None)
Quarter: 2012Q2

REPORT INFORMATION
  Report Type: 
  Country: None (occurrence: None)
  Receive Date: 20120426
  Receipt Date: 20110808
  Transmission Date: 20120825
  Serious: Yes (Other)
  Sender: FDA-Public Use
  Company Number: US-TEVA-US018428

PATIENT
  Sex: Male
  Weight: 78 kg

DRUGS (5)
  1. MULTI-VITAMINS [Concomitant]
     Route: 065
  2. FISH OIL [Concomitant]
     Route: 065
  3. PROVIGIL [Suspect]
     Indication: DEPRESSION
     Dosage: 200 MILLIGRAM;
     Route: 048
     Dates: start: 20050101, end: 20060901
  4. WELLBUTRIN SR [Concomitant]
     Indication: DEPRESSION
     Dosage: 200 MILLIGRAM;
     Route: 048
  5. INTERFERON [Concomitant]
     Indication: NEOPLASM MALIGNANT
     Route: 065

REACTIONS (1)
  - HYPERTENSION [None]
